FAERS Safety Report 23535189 (Version 1)
Quarter: 2024Q1

REPORT INFORMATION
  Report Type: Report from Study
  Country: US (occurrence: US)
  Receive Date: 20240218
  Receipt Date: 20240218
  Transmission Date: 20240410
  Serious: Yes (Other)
  Sender: FDA-Public Use
  Company Number: US-002147023-NVSC2024US032592

PATIENT
  Sex: Female

DRUGS (1)
  1. KESIMPTA [Suspect]
     Active Substance: OFATUMUMAB
     Indication: Product used for unknown indication
     Dosage: 20 MG
     Route: 065

REACTIONS (5)
  - Syncope [Unknown]
  - Dizziness [Unknown]
  - Lethargy [Unknown]
  - Headache [Unknown]
  - Blood glucose decreased [Unknown]
